FAERS Safety Report 23068499 (Version 4)
Quarter: 2023Q4

REPORT INFORMATION
  Report Type: Spontaneous
  Country: GB (occurrence: GB)
  Receive Date: 20231016
  Receipt Date: 20231207
  Transmission Date: 20240109
  Serious: No
  Sender: FDA-Public Use
  Company Number: GB-PFIZER INC-PV202300159981

PATIENT
  Age: 39 Year
  Sex: Female

DRUGS (1)
  1. GENOTROPIN [Suspect]
     Active Substance: SOMATROPIN
     Indication: Hypopituitarism
     Dosage: 0.40 MG, 1X/DAY
     Route: 058
     Dates: start: 20210219

REACTIONS (4)
  - Poor quality device used [Unknown]
  - Device delivery system issue [Unknown]
  - Needle issue [Unknown]
  - Drug dose omission by device [Unknown]
